FAERS Safety Report 5845652-4 (Version None)
Quarter: 2008Q3

REPORT INFORMATION
  Report Type: 
  Country: None (occurrence: None)
  Receive Date: 20080731
  Receipt Date: 20080529
  Transmission Date: 20090109
  Serious: No
  Sender: FDA-Public Use
  Company Number: US200805006247

PATIENT
  Age: 79 Year
  Sex: Female
  Weight: 98.9 kg

DRUGS (1)
  1. BYETTA [Suspect]
     Indication: ANOREXIA
     Dosage: 5 UG, 2/D, SUBCUTANEOUS
     Route: 058
     Dates: start: 20080311

REACTIONS (6)
  - INJECTION SITE IRRITATION [None]
  - INJECTION SITE PAIN [None]
  - INJECTION SITE PRURITUS [None]
  - MUSCULAR WEAKNESS [None]
  - NAUSEA [None]
  - WHEEZING [None]
